FAERS Safety Report 12854203 (Version 5)
Quarter: 2017Q2

REPORT INFORMATION
  Report Type: Spontaneous
  Country: US (occurrence: US)
  Receive Date: 20161017
  Receipt Date: 20170404
  Transmission Date: 20170830
  Serious: Yes (Hospitalization)
  Sender: FDA-Public Use
  Company Number: US-PFIZER INC-2016482163

PATIENT
  Age: 47 Year
  Sex: Female
  Weight: 92.53 kg

DRUGS (13)
  1. SKELAXIN [Suspect]
     Active Substance: METAXALONE
     Indication: BONE PAIN
     Dosage: 800 MG, 4X/DAY
     Route: 048
     Dates: end: 201612
  2. GABAPENTIN. [Concomitant]
     Active Substance: GABAPENTIN
     Indication: SEIZURE
     Dosage: 300 MG, 3X/DAY
     Route: 048
  3. ALBUTEROL. [Concomitant]
     Active Substance: ALBUTEROL
     Indication: DYSPNOEA
  4. GABAPENTIN. [Concomitant]
     Active Substance: GABAPENTIN
     Dosage: 800 UNK, UNK
     Route: 046
  5. VALIUM [Concomitant]
     Active Substance: DIAZEPAM
     Indication: SEIZURE
  6. VALIUM [Concomitant]
     Active Substance: DIAZEPAM
     Indication: MUSCULOSKELETAL DISCOMFORT
  7. HYDROCORTISONE. [Concomitant]
     Active Substance: HYDROCORTISONE
     Indication: MUSCULOSKELETAL STIFFNESS
  8. SKELAXIN [Suspect]
     Active Substance: METAXALONE
     Indication: MUSCLE RELAXANT THERAPY
  9. SKELAXIN [Suspect]
     Active Substance: METAXALONE
     Indication: MUSCLE RELAXANT THERAPY
     Dosage: 800 MG, 3X/DAY
     Dates: start: 2015
  10. ALBUTEROL. [Concomitant]
     Active Substance: ALBUTEROL
     Indication: ASTHMA
     Dosage: UNK
     Route: 055
  11. VALIUM [Concomitant]
     Active Substance: DIAZEPAM
     Indication: NEURALGIA
     Dosage: 10 MG, 2X/DAY
     Route: 048
  12. HYDROCORTISONE. [Concomitant]
     Active Substance: HYDROCORTISONE
     Indication: ARTHRALGIA
     Dosage: 7.5 MG, 3X/DAY
     Route: 048
  13. VALIUM [Concomitant]
     Active Substance: DIAZEPAM
     Indication: MUSCLE SPASMS

REACTIONS (1)
  - Back disorder [Not Recovered/Not Resolved]

NARRATIVE: CASE EVENT DATE: 201506
